FAERS Safety Report 11199315 (Version 1)
Quarter: 2015Q2

REPORT INFORMATION
  Report Type: Spontaneous
  Country: TR (occurrence: None)
  Receive Date: 20150616
  Receipt Date: 20150616
  Transmission Date: 20150821
  Serious: Yes (Life-Threatening, Hospitalization)
  Sender: FDA-Public Use
  Company Number: COR_00306_2015

PATIENT
  Sex: Male

DRUGS (4)
  1. KETOPROFEN (KETOPROFEN) [Suspect]
     Active Substance: KETOPROFEN
     Indication: PRODUCT USED FOR UNKNOWN INDICATION
     Dosage: DF
  2. OLANZAPINE (OLANZAPINE) [Suspect]
     Active Substance: OLANZAPINE
     Indication: BIPOLAR DISORDER
     Dosage: DF
  3. LITHIUM. [Suspect]
     Active Substance: LITHIUM
     Indication: BIPOLAR DISORDER
     Dosage: DF
  4. CEFPROZIL (CEFPROZIL) [Suspect]
     Active Substance: CEFPROZIL
     Indication: PRODUCT USED FOR UNKNOWN INDICATION
     Dosage: DF

REACTIONS (13)
  - Diarrhoea [None]
  - Vomiting [None]
  - Dehydration [None]
  - Disorientation [None]
  - Loss of consciousness [None]
  - Pyrexia [None]
  - Hypophagia [None]
  - Confusional state [None]
  - Sinus tachycardia [None]
  - Acute kidney injury [None]
  - Neuroleptic malignant syndrome [None]
  - Toxicity to various agents [None]
  - Electrocardiogram T wave peaked [None]
